FAERS Safety Report 10043350 (Version 1)
Quarter: 2014Q1

REPORT INFORMATION
  Report Type: Spontaneous
  Country: JP (occurrence: JP)
  Receive Date: 20140328
  Receipt Date: 20140328
  Transmission Date: 20141002
  Serious: Yes (Hospitalization)
  Sender: FDA-Public Use
  Company Number: JP-TEVA-470696ISR

PATIENT
  Sex: Female

DRUGS (3)
  1. EPOPROSTENOL [Suspect]
     Indication: PULMONARY ARTERIAL HYPERTENSION
     Dosage: GRADUALLY INCREASED TO 75 NG/KG/MIN
     Route: 042
  2. SILDENAFIL [Concomitant]
     Indication: PULMONARY ARTERIAL HYPERTENSION
     Route: 065
  3. BOSENTAN [Concomitant]
     Indication: PULMONARY ARTERIAL HYPERTENSION
     Route: 065

REACTIONS (1)
  - Ascites [Recovered/Resolved]
